FAERS Safety Report 4774927-5 (Version None)
Quarter: 2005Q3

REPORT INFORMATION
  Report Type: 
  Country: None (occurrence: None)
  Receive Date: 20050921
  Receipt Date: 20050117
  Transmission Date: 20060218
  Serious: Yes (Death, Hospitalization)
  Sender: FDA-Public Use
  Company Number: 2005AP00309

PATIENT
  Age: 30792 Day
  Sex: Male
  Weight: 57 kg

DRUGS (9)
  1. IRESSA [Suspect]
     Indication: NON-SMALL CELL LUNG CANCER
     Route: 048
     Dates: start: 20020906, end: 20050114
  2. WARFARIN SODIUM [Concomitant]
     Indication: CARDIAC ANEURYSM
     Route: 048
     Dates: start: 19970407
  3. GASTER D [Concomitant]
     Route: 048
     Dates: start: 20040820
  4. WAPLON-P [Concomitant]
     Indication: STOMATITIS
     Route: 065
     Dates: start: 20040926
  5. COVERSYL [Concomitant]
     Indication: CARDIAC FAILURE
     Route: 048
     Dates: start: 19970407, end: 20040922
  6. LANIRAPID [Concomitant]
     Indication: CARDIAC FAILURE
     Route: 048
     Dates: start: 19970407
  7. LASIX [Concomitant]
     Indication: CARDIAC FAILURE
     Route: 048
     Dates: start: 19970407
  8. MAGNESIUM OXIDE [Concomitant]
     Indication: CONSTIPATION
     Route: 048
     Dates: start: 19970407
  9. ALOSENN [Concomitant]
     Indication: CONSTIPATION
     Route: 048
     Dates: start: 19970407

REACTIONS (12)
  - ALANINE AMINOTRANSFERASE INCREASED [None]
  - ASPARTATE AMINOTRANSFERASE INCREASED [None]
  - BLOOD BILIRUBIN DECREASED [None]
  - BLOOD PRESSURE DECREASED [None]
  - COLITIS EROSIVE [None]
  - DEPRESSED LEVEL OF CONSCIOUSNESS [None]
  - INTESTINAL PERFORATION [None]
  - LIVER DISORDER [None]
  - PAIN [None]
  - PERITONITIS [None]
  - RASH [None]
  - STOMATITIS [None]
